FAERS Safety Report 6089048-1 (Version None)
Quarter: 2009Q1

REPORT INFORMATION
  Report Type: 
  Country: None (occurrence: None)
  Receive Date: 20090224
  Receipt Date: 20090216
  Transmission Date: 20090719
  Serious: Yes (Hospitalization)
  Sender: FDA-Public Use
  Company Number: B0554533A

PATIENT
  Age: 62 Year
  Sex: Male
  Weight: 77 kg

DRUGS (12)
  1. ARIXTRA [Suspect]
     Indication: THROMBOSIS PROPHYLAXIS
     Route: 065
     Dates: start: 20081101, end: 20081130
  2. LOXEN [Concomitant]
     Route: 042
  3. APROVEL [Concomitant]
     Route: 065
  4. CATAPRESSAN [Concomitant]
     Route: 065
  5. METFORMIN HCL [Concomitant]
     Route: 065
  6. TETRAZEPAM [Concomitant]
     Route: 065
  7. LEXOMIL [Concomitant]
     Route: 065
  8. ATARAX [Concomitant]
     Route: 065
  9. LAROXYL [Concomitant]
     Route: 065
  10. SIMVASTATIN [Concomitant]
     Route: 065
  11. DOLIPRANE [Concomitant]
     Route: 065
  12. TRAMADOL HCL [Concomitant]
     Route: 065

REACTIONS (3)
  - ANAEMIA [None]
  - ANURIA [None]
  - HAEMATURIA [None]
